FAERS Safety Report 6432122-8 (Version None)
Quarter: 2009Q4

REPORT INFORMATION
  Report Type: 
  Country: None (occurrence: None)
  Receive Date: 20091105
  Receipt Date: 20091022
  Transmission Date: 20100525
  Serious: Yes (Hospitalization)
  Sender: FDA-Public Use
  Company Number: MOZO-1000268

PATIENT
  Age: 48 Year
  Sex: Female
  Weight: 117 kg

DRUGS (2)
  1. MOZOBIL [Suspect]
     Indication: HAEMATOPOIETIC STEM CELL MOBILISATION
     Dosage: 240 MCG/KG, QD, SUBCUTANEOUS
     Route: 058
     Dates: start: 20090628, end: 20090629
  2. MOZOBIL [Suspect]
     Indication: MULTIPLE MYELOMA
     Dosage: 240 MCG/KG, QD, SUBCUTANEOUS
     Route: 058
     Dates: start: 20090628, end: 20090629

REACTIONS (2)
  - MYELOMA RECURRENCE [None]
  - PLASMACYTOMA [None]
